FAERS Safety Report 4816012-X (Version None)
Quarter: 2005Q4

REPORT INFORMATION
  Report Type: 
  Country: None (occurrence: None)
  Receive Date: 20051026
  Receipt Date: 20051014
  Transmission Date: 20060501
  Serious: Yes (Hospitalization, Other)
  Sender: FDA-Public Use
  Company Number: KII-2005-0019163

PATIENT
  Age: 44 Year
  Sex: Female

DRUGS (6)
  1. OXYCODONE HCL [Suspect]
     Indication: DRUG USE FOR UNKNOWN INDICATION
     Dosage: ORAL
     Route: 048
  2. BENZODIAZEPINE DERIVATIVES [Suspect]
     Indication: DRUG USE FOR UNKNOWN INDICATION
     Dosage: ORAL
     Route: 048
  3. ETHANOL(ETHANOL) [Suspect]
     Indication: DRUG USE FOR UNKNOWN INDICATION
     Dosage: ORAL
     Route: 048
  4. SODIUM HYPOCHLORITE (SODIUM HYPOCHLORITE) [Suspect]
     Indication: INTENTIONAL DRUG MISUSE
     Dosage: ORAL
     Route: 048
  5. SPOT REMOVER:  OTHER HALOGENATED HYDROCARBON CONTAINING PRODUCT) [Suspect]
     Indication: INTENTIONAL DRUG MISUSE
     Dosage: ORAL
     Route: 048
  6. WALL/FLOOR/ALL PURPOSE CLEARNER:ALKALI) [Suspect]
     Dosage: ORAL
     Route: 048

REACTIONS (7)
  - ALCOHOL USE [None]
  - BALANCE DISORDER [None]
  - HYPOTENSION [None]
  - MULTIPLE DRUG OVERDOSE INTENTIONAL [None]
  - POLYSUBSTANCE ABUSE [None]
  - SELF INJURIOUS BEHAVIOUR [None]
  - SOMNOLENCE [None]
